FAERS Safety Report 6286911-3 (Version None)
Quarter: 2009Q3

REPORT INFORMATION
  Report Type: 
  Country: None (occurrence: None)
  Receive Date: 20090724
  Receipt Date: 20090720
  Transmission Date: 20100115
  Serious: Yes (Life-Threatening, Hospitalization)
  Sender: FDA-Public Use
  Company Number: 2009-00690

PATIENT
  Age: 66 Year
  Sex: Female

DRUGS (3)
  1. VELCADE [Suspect]
     Indication: LEUKAEMIA PLASMACYTIC
     Dosage: 3.5 MG, INTRAVENOUS
     Route: 042
     Dates: start: 20090119, end: 20090127
  2. AREDIA [Concomitant]
  3. DEXAMETHASONE [Concomitant]

REACTIONS (5)
  - BLOOD MAGNESIUM DECREASED [None]
  - CONVULSION [None]
  - HEMIPLEGIA [None]
  - HYPOCALCAEMIA [None]
  - STATUS EPILEPTICUS [None]
